FAERS Safety Report 5305517-3 (Version None)
Quarter: 2007Q2

REPORT INFORMATION
  Report Type: 
  Country: None (occurrence: None)
  Receive Date: 20070424
  Receipt Date: 20060417
  Transmission Date: 20071010
  Serious: No
  Sender: FDA-Public Use
  Company Number: US-GLAXOSMITHKLINE-A0369380A

PATIENT
  Age: 70 Year
  Sex: Male

DRUGS (4)
  1. FLOVENT [Suspect]
     Indication: CHRONIC OBSTRUCTIVE PULMONARY DISEASE
     Dosage: 88MCG TWICE PER DAY
     Route: 055
  2. ASPIRIN [Concomitant]
  3. LIPITOR [Concomitant]
     Dosage: 20MG PER DAY
  4. VITAMIN B [Concomitant]

REACTIONS (3)
  - DRUG INEFFECTIVE [None]
  - DYSPNOEA [None]
  - THROAT IRRITATION [None]
